FAERS Safety Report 5524743-1 (Version None)
Quarter: 2007Q4

REPORT INFORMATION
  Report Type: 
  Country: None (occurrence: None)
  Receive Date: 20071123
  Receipt Date: 20071120
  Transmission Date: 20080405
  Serious: Yes (Life-Threatening, Other)
  Sender: FDA-Public Use
  Company Number: PHEH2007US14851

PATIENT
  Age: 57 Year
  Sex: Male

DRUGS (22)
  1. RECLAST [Suspect]
     Indication: OSTEOPOROSIS
     Dosage: 5 MG, ONCE/SINGLE
     Dates: start: 20071006
  2. TYLOX [Concomitant]
     Dosage: 2 CAPS EVERY 4-6 HOURS
     Route: 048
  3. FENTANYL [Concomitant]
     Dosage: 73 MCG/HR APPLY TO SKIN Q3D
     Route: 062
  4. VISTARIL [Concomitant]
     Dosage: 25 MG, QID
     Route: 048
  5. RELPAX [Concomitant]
     Indication: MIGRAINE
     Dosage: 40 MG, PRN
  6. TRAZODONE HCL [Concomitant]
     Dosage: 150 MG, 2 TABS QHS
     Route: 048
  7. TEMAZEPAM [Concomitant]
     Dosage: 30 MG, QHS
     Route: 048
  8. VITAMIN B-12 [Concomitant]
     Dosage: 1000 MMOL, QMO
  9. NEXIUM [Concomitant]
     Dosage: 40 MG, BID
     Route: 048
  10. FOLIC ACID [Concomitant]
     Dosage: 1 MG, QD
     Route: 048
  11. FLONASE [Concomitant]
     Dosage: 2 SPRAYS EACH NOSTRIL QD SPRING AND FALL
     Route: 045
  12. LASIX [Concomitant]
     Dosage: 40 MG, ONCE OR TWICE A DAY
  13. POTASSIUM CHLORIDE [Concomitant]
     Dosage: 20 MEQ, BID WHEN TAKING LASIX
     Route: 048
  14. CITRACAL + D [Concomitant]
     Dosage: 4 TABLETS NOON AND NIGHT
     Route: 048
  15. PREDNISONE TAB [Concomitant]
     Dosage: 10 MG, QD3SDO
     Route: 048
  16. LIDOCAINE [Concomitant]
     Indication: HAEMORRHOIDS
     Dosage: 5 %, PRN
     Route: 061
  17. PROCTOCREAM-HC [Concomitant]
     Indication: HAEMORRHOIDS
     Dosage: 2.5 %, PRN
  18. GAS X [Concomitant]
     Dosage: 240 MG, QD
  19. ARTIFICIAL TEARS [Concomitant]
     Dosage: PRN
  20. KEPPRA [Concomitant]
     Dosage: 250 MG, 2 TABS IN AM AND NIGHT
  21. HUMIRA [Concomitant]
     Dosage: 40 MG/0.8MG PEN, 1 PEN SQ EVERY OTHER WEEK
     Route: 058
  22. ERGOCALCIFEROL [Concomitant]

REACTIONS (4)
  - ARTHRALGIA [None]
  - CONVULSION [None]
  - MALAISE [None]
  - MIGRAINE [None]
